FAERS Safety Report 20000873 (Version 1)
Quarter: 2021Q4

REPORT INFORMATION
  Report Type: Spontaneous
  Country: US (occurrence: US)
  Receive Date: 20211026
  Receipt Date: 20211026
  Transmission Date: 20220303
  Serious: Yes (unspecified)
  Sender: FDA-Public Use
  Company Number: None

PATIENT
  Age: 38 Year
  Sex: Female
  Weight: 51.75 kg

DRUGS (2)
  1. CIPROFLOXACIN [Suspect]
     Active Substance: CIPROFLOXACIN
     Indication: Uterine infection
     Dosage: ?          QUANTITY:1 TABLET(S);
     Route: 048
     Dates: start: 20210602, end: 20210612
  2. METRONIDAZOLE [Suspect]
     Active Substance: METRONIDAZOLE

REACTIONS (27)
  - Anxiety [None]
  - Insomnia [None]
  - Vision blurred [None]
  - Abnormal dreams [None]
  - Contusion [None]
  - Fatigue [None]
  - Arthralgia [None]
  - Arthralgia [None]
  - Pain in extremity [None]
  - Arthralgia [None]
  - Arthralgia [None]
  - Pain in extremity [None]
  - Arthralgia [None]
  - Paraesthesia [None]
  - Skin burning sensation [None]
  - Feeling abnormal [None]
  - Fatigue [None]
  - Panic attack [None]
  - Paranoia [None]
  - Depression [None]
  - Suicidal ideation [None]
  - Histamine level increased [None]
  - Blood magnesium decreased [None]
  - Fear [None]
  - Weight decreased [None]
  - Loss of personal independence in daily activities [None]
  - Crying [None]

NARRATIVE: CASE EVENT DATE: 20210608
